FAERS Safety Report 20000247 (Version 1)
Quarter: 2021Q4

REPORT INFORMATION
  Report Type: Spontaneous
  Country: US (occurrence: US)
  Receive Date: 20211026
  Receipt Date: 20211026
  Transmission Date: 20220304
  Serious: Yes (Other)
  Sender: FDA-Public Use
  Company Number: US-ELI_LILLY_AND_COMPANY-US202110008130

PATIENT
  Sex: Male

DRUGS (2)
  1. GLUCAGON [Suspect]
     Active Substance: GLUCAGON
     Indication: Hypoglycaemia unawareness
     Dosage: UNK UNK, UNKNOWN
     Route: 065
     Dates: start: 1996
  2. BAQSIMI [Suspect]
     Active Substance: GLUCAGON
     Indication: Product used for unknown indication
     Dosage: UNK UNK, UNKNOWN
     Route: 065

REACTIONS (1)
  - Deafness [Unknown]

NARRATIVE: CASE EVENT DATE: 20150101
